FAERS Safety Report 4649183-9 (Version None)
Quarter: 2005Q2

REPORT INFORMATION
  Report Type: 
  Country: None (occurrence: None)
  Receive Date: 20050427
  Receipt Date: 20050412
  Transmission Date: 20051028
  Serious: Yes (Death, Other)
  Sender: FDA-Public Use
  Company Number: USA050494677

PATIENT
  Age: 68 Year
  Weight: 102 kg

DRUGS (7)
  1. XIGRIS [Suspect]
     Indication: SEPSIS
     Dosage: 24 UG/KG/HR
     Dates: start: 20050311, end: 20050313
  2. PRIMAXIN [Concomitant]
  3. METHYLPREDNISOLONE [Concomitant]
  4. DOPAMINE HCL [Concomitant]
  5. LEVOPHED (NOREPINEPHRINE BITARTRATE0 [Concomitant]
  6. ALBUTEROL [Concomitant]
  7. IPRATROPIUM BROMIDE [Concomitant]

REACTIONS (3)
  - B-CELL LYMPHOMA [None]
  - GASTROINTESTINAL HAEMORRHAGE [None]
  - LOBAR PNEUMONIA [None]
